FAERS Safety Report 6123347-X (Version None)
Quarter: 2009Q1

REPORT INFORMATION
  Report Type: 
  Country: None (occurrence: None)
  Receive Date: 20090318
  Receipt Date: 20090310
  Transmission Date: 20090719
  Serious: Yes (Hospitalization)
  Sender: FDA-Public Use
  Company Number: US-ELI_LILLY_AND_COMPANY-US200903002647

PATIENT
  Sex: Male
  Weight: 94.785 kg

DRUGS (9)
  1. BYETTA [Suspect]
     Indication: TYPE 2 DIABETES MELLITUS
     Dosage: 5 UG, 2/D
     Route: 058
     Dates: start: 20070101, end: 20070101
  2. BYETTA [Suspect]
     Dosage: 10 UG, 2/D
     Route: 058
     Dates: start: 20070101
  3. AVALIDE [Concomitant]
     Indication: BLOOD PRESSURE INCREASED
     Dates: end: 20090201
  4. NORVASC [Concomitant]
     Indication: BLOOD PRESSURE INCREASED
     Dates: end: 20090201
  5. ALLOPURINOL [Concomitant]
     Indication: GOUT
     Dosage: 100 MG, DAILY (1/D)
  6. PROSCAR [Concomitant]
     Indication: PROSTATOMEGALY
  7. GLUCOTROL [Concomitant]
     Indication: TYPE 2 DIABETES MELLITUS
     Dosage: 5 MG, DAILY (1/D)
  8. CRESTOR [Concomitant]
     Indication: BLOOD CHOLESTEROL INCREASED
     Dosage: 10 MG, DAILY (1/D)
  9. NEXIUM [Concomitant]
     Indication: REFLUX OESOPHAGITIS

REACTIONS (8)
  - BACK DISORDER [None]
  - BLOOD GLUCOSE INCREASED [None]
  - BLOOD PRESSURE DECREASED [None]
  - DECREASED APPETITE [None]
  - DYSPEPSIA [None]
  - PAIN IN EXTREMITY [None]
  - SPINAL COLUMN STENOSIS [None]
  - WEIGHT DECREASED [None]
